FAERS Safety Report 22247815 (Version 1)
Quarter: 2023Q2

REPORT INFORMATION
  Report Type: Spontaneous
  Country: CA (occurrence: CA)
  Receive Date: 20230425
  Receipt Date: 20230425
  Transmission Date: 20230722
  Serious: Yes (Death, Other)
  Sender: FDA-Public Use
  Company Number: CA-CELLTRION INC.-2022CA018973

PATIENT

DRUGS (18)
  1. INFLECTRA [Suspect]
     Active Substance: INFLIXIMAB-DYYB
     Indication: Cardiac sarcoidosis
     Dosage: 3 MG/KG, EVERY 8 WEEKS (WEEK 0 INFUSION AT HOSPITAL)
     Route: 042
     Dates: start: 20221117
  2. INFLECTRA [Suspect]
     Active Substance: INFLIXIMAB-DYYB
     Dosage: 3 MG/KG, EVERY 8 WEEKS
     Route: 042
     Dates: start: 20221202
  3. INFLECTRA [Suspect]
     Active Substance: INFLIXIMAB-DYYB
     Dosage: 3 MG/KG, EVERY 8 WEEKS
     Route: 042
     Dates: start: 20221230
  4. AMIODARONE [Concomitant]
     Active Substance: AMIODARONE
     Dosage: 1 DF
  5. BISOPROLOL [Concomitant]
     Active Substance: BISOPROLOL
     Dosage: 1 DF
  6. CALCIUM [Concomitant]
     Active Substance: CALCIUM
     Dosage: 1 DF
  7. EPLERENONE [Concomitant]
     Active Substance: EPLERENONE
     Dosage: 1 DF
  8. ENTRESTO [Concomitant]
     Active Substance: SACUBITRIL\VALSARTAN
     Dosage: 1 DF
  9. FOLIC ACID [Concomitant]
     Active Substance: FOLIC ACID
     Dosage: 1 DF
  10. EDOXABAN TOSYLATE [Concomitant]
     Active Substance: EDOXABAN TOSYLATE
     Dosage: 1 DF
  11. PANTOPRAZOLE SODIUM [Concomitant]
     Active Substance: PANTOPRAZOLE SODIUM
     Dosage: 1 DF
  12. RISEDRONATE SODIUM [Concomitant]
     Active Substance: RISEDRONATE SODIUM
     Dosage: 1 DF
  13. SPIRIVA [Concomitant]
     Active Substance: TIOTROPIUM BROMIDE MONOHYDRATE
     Dosage: 1 DF
  14. SULFADIAZINE\TRIMETHOPRIM [Concomitant]
     Active Substance: SULFADIAZINE\TRIMETHOPRIM
     Dosage: 1 DF
  15. SYMBICORT [Concomitant]
     Active Substance: BUDESONIDE\FORMOTEROL FUMARATE DIHYDRATE
     Dosage: 1 DF
  16. CHOLECALCIFEROL [Concomitant]
     Active Substance: CHOLECALCIFEROL
     Dosage: 1 DF
  17. ZOPICLONE [Concomitant]
     Active Substance: ZOPICLONE
     Dosage: 1 DF
  18. METHOTREXATE [Concomitant]
     Active Substance: METHOTREXATE
     Dosage: 25 MG, WEEKLY
     Route: 048

REACTIONS (4)
  - Death [Fatal]
  - Arthralgia [Recovered/Resolved]
  - Pain in extremity [Recovered/Resolved]
  - Off label use [Unknown]

NARRATIVE: CASE EVENT DATE: 20221117
